FAERS Safety Report 11999746 (Version 1)
Quarter: 2016Q1

REPORT INFORMATION
  Report Type: Spontaneous
  Country: FR (occurrence: FR)
  Receive Date: 20160204
  Receipt Date: 20160204
  Transmission Date: 20160526
  Serious: Yes (Other)
  Sender: FDA-Public Use
  Company Number: FR-BRISTOL-MYERS SQUIBB COMPANY-18820936

PATIENT
  Age: 44 Year
  Sex: Male

DRUGS (1)
  1. SPRYCEL [Suspect]
     Active Substance: DASATINIB
     Indication: CHRONIC MYELOID LEUKAEMIA
     Dosage: DISCONTINUED ON 18MAR13  RESTARTED:07APR13  14APR13:DOSE INCRESED 70MGX2
     Route: 048
     Dates: start: 20130108, end: 20130506

REACTIONS (10)
  - Abdominal pain [Recovered/Resolved]
  - Diarrhoea [Recovered/Resolved]
  - Mouth ulceration [Unknown]
  - Photosensitivity reaction [Recovering/Resolving]
  - Rash macular [Recovering/Resolving]
  - Arthralgia [Unknown]
  - Off label use [Unknown]
  - Hyperthermia [Recovered/Resolved]
  - Hepatocellular injury [Unknown]
  - Headache [Recovered/Resolved]

NARRATIVE: CASE EVENT DATE: 2013
